FAERS Safety Report 14705952 (Version 1)
Quarter: 2018Q2

REPORT INFORMATION
  Report Type: Spontaneous
  Country: ES (occurrence: ES)
  Receive Date: 20180402
  Receipt Date: 20180402
  Transmission Date: 20180711
  Serious: Yes (Death, Life-Threatening, Other)
  Sender: FDA-Public Use
  Company Number: ES-MYLANLABS-2018M1019988

PATIENT

DRUGS (3)
  1. IDARUBICIN [Suspect]
     Active Substance: IDARUBICIN
     Indication: ACUTE PROMYELOCYTIC LEUKAEMIA
     Dosage: 5, 7, 12 MG/M2/D
  2. MITOXANTRONE [Suspect]
     Active Substance: MITOXANTRONE HYDROCHLORIDE
     Indication: ACUTE PROMYELOCYTIC LEUKAEMIA
     Dosage: 10 MG/M2, QD
  3. ALL-TRANS RETINOIC ACID [Suspect]
     Active Substance: TRETINOIN
     Indication: ACUTE PROMYELOCYTIC LEUKAEMIA
     Dosage: 45 MG/M2, QD

REACTIONS (12)
  - Neoplasm [Fatal]
  - Oral disorder [Fatal]
  - Hepatotoxicity [Fatal]
  - Leukaemia recurrent [Fatal]
  - Infection [Fatal]
  - Neutropenia [Fatal]
  - Cardiogenic shock [Fatal]
  - Thrombosis [Fatal]
  - Diarrhoea [Fatal]
  - Haemorrhage [Fatal]
  - Acute promyelocytic leukaemia differentiation syndrome [Fatal]
  - Thrombocytopenia [Fatal]
